FAERS Safety Report 4285429-7 (Version None)
Quarter: 2004Q1

REPORT INFORMATION
  Report Type: 
  Country: None (occurrence: None)
  Receive Date: 20040202
  Receipt Date: 20040202
  Transmission Date: 20041129
  Serious: Yes (Hospitalization)
  Sender: FDA-Public Use
  Company Number: None

PATIENT
  Sex: Male
  Weight: 77.4 kg

DRUGS (1)
  1. DILANTIN [Suspect]
     Indication: MENTAL RETARDATION SEVERITY UNSPECIFIED
     Dosage: 500 MG/DAY PO [LONG TERM]
     Route: 048

REACTIONS (5)
  - DIZZINESS [None]
  - DRUG TOXICITY [None]
  - HEADACHE [None]
  - MEDICATION ERROR [None]
  - VOMITING [None]
